FAERS Safety Report 7674686-2 (Version None)
Quarter: 2011Q3

REPORT INFORMATION
  Report Type: 
  Country: None (occurrence: None)
  Receive Date: 20110810
  Receipt Date: 20110722
  Transmission Date: 20111222
  Serious: Yes (Death, Hospitalization)
  Sender: FDA-Public Use
  Company Number: US-GLAXOSMITHKLINE-A0864612A

PATIENT
  Age: 56 Year
  Sex: Female

DRUGS (11)
  1. AVANDIA [Suspect]
     Indication: DIABETES MELLITUS
     Dosage: 4MG TWICE PER DAY
     Route: 048
     Dates: start: 20030304, end: 20030530
  2. ZOLOFT [Concomitant]
  3. TRENTAL [Concomitant]
  4. NEURONTIN [Concomitant]
  5. GLYNASE [Concomitant]
  6. INSULIN [Concomitant]
  7. PROTONIX [Concomitant]
  8. VIOXX [Concomitant]
  9. VIOXX [Concomitant]
  10. NORVASC [Concomitant]
  11. GLUCOPHAGE [Concomitant]

REACTIONS (4)
  - CARDIAC DISORDER [None]
  - CEREBROVASCULAR ACCIDENT [None]
  - DEATH [None]
  - TRANSIENT ISCHAEMIC ATTACK [None]
